FAERS Safety Report 11512731 (Version 1)
Quarter: 2015Q3

REPORT INFORMATION
  Report Type: Spontaneous
  Country: US (occurrence: US)
  Receive Date: 20150903
  Receipt Date: 20150903
  Transmission Date: 20151125
  Serious: No
  Sender: FDA-Public Use
  Company Number: US-ELI_LILLY_AND_COMPANY-US201003008633

PATIENT
  Sex: Male

DRUGS (3)
  1. LISINOPRIL. [Concomitant]
     Active Substance: LISINOPRIL
  2. HUMALOG MIX75/25 [Suspect]
     Active Substance: INSULIN LISPRO
     Indication: DIABETES MELLITUS
     Dosage: 30 U, OTHER
     Dates: start: 200809, end: 201003
  3. ZETIA [Concomitant]
     Active Substance: EZETIMIBE

REACTIONS (3)
  - Fear [Unknown]
  - Urticaria [Recovered/Resolved]
  - Injection site rash [Unknown]

NARRATIVE: CASE EVENT DATE: 201003
